FAERS Safety Report 4886252-2 (Version None)
Quarter: 2006Q1

REPORT INFORMATION
  Report Type: 
  Country: None (occurrence: None)
  Receive Date: 20060120
  Receipt Date: 20051221
  Transmission Date: 20060701
  Serious: Yes (Hospitalization)
  Sender: FDA-Public Use
  Company Number: PHHO2005BR19967

PATIENT
  Age: 72 Year
  Sex: Female

DRUGS (4)
  1. DIOVAN AMLO [Suspect]
     Indication: HYPERTENSION
     Dosage: 80/5MG/DAILY
     Route: 048
  2. GINKGO BILOBA [Concomitant]
  3. LEXOTAN [Concomitant]
  4. DIURIX [Concomitant]

REACTIONS (6)
  - ASTHENIA [None]
  - ATRIAL FIBRILLATION [None]
  - BLOOD PRESSURE DECREASED [None]
  - DEHYDRATION [None]
  - ELECTROLYTE IMBALANCE [None]
  - OEDEMA PERIPHERAL [None]
